FAERS Safety Report 19232107 (Version 2)
Quarter: 2021Q2

REPORT INFORMATION
  Report Type: Spontaneous
  Country: GB (occurrence: GB)
  Receive Date: 20210507
  Receipt Date: 20210513
  Transmission Date: 20210717
  Serious: Yes (Death, Other)
  Sender: FDA-Public Use
  Company Number: GB-009507513-2105GBR001058

PATIENT
  Sex: Male

DRUGS (1)
  1. PEMBROLIZUMAB. [Suspect]
     Active Substance: PEMBROLIZUMAB
     Indication: LOWER RESPIRATORY TRACT INFECTION
     Dosage: 200 MILLIGRAM, Q3W

REACTIONS (5)
  - Suspected COVID-19 [Recovered/Resolved]
  - General physical health deterioration [Unknown]
  - Death [Fatal]
  - Pneumonitis [Recovered/Resolved]
  - Lower respiratory tract infection [Unknown]
